FAERS Safety Report 14735119 (Version 1)
Quarter: 2018Q2

REPORT INFORMATION
  Report Type: Spontaneous
  Country: US (occurrence: US)
  Receive Date: 20180403
  Receipt Date: 20180403
  Transmission Date: 20180711
  Serious: Yes (Hospitalization)
  Sender: FDA-Public Use
  Company Number: None

PATIENT
  Age: 59 Year
  Sex: Female

DRUGS (4)
  1. OCALIVA [Suspect]
     Active Substance: OBETICHOLIC ACID
     Indication: PRIMARY BILIARY CHOLANGITIS
     Route: 048
     Dates: start: 20180314
  2. NPLATE [Concomitant]
     Active Substance: ROMIPLOSTIM
  3. AMOXICILLIN. [Concomitant]
     Active Substance: AMOXICILLIN
  4. LISINOPRIL. [Concomitant]
     Active Substance: LISINOPRIL

REACTIONS (5)
  - Pruritus [None]
  - Drug dose omission [None]
  - Drug hypersensitivity [None]
  - Internal haemorrhage [None]
  - Lip swelling [None]

NARRATIVE: CASE EVENT DATE: 2018
